FAERS Safety Report 18451423 (Version 1)
Quarter: 2020Q4

REPORT INFORMATION
  Report Type: Spontaneous
  Country: US (occurrence: US)
  Receive Date: 20201101
  Receipt Date: 20201101
  Transmission Date: 20210114
  Serious: Yes (Hospitalization, Other)
  Sender: FDA-Public Use
  Company Number: US-NAPPMUNDI-USA-2020-0153978

PATIENT

DRUGS (2)
  1. HYDROCODONE BITARTRATE (SIMILAR TO NDA 206627) [Suspect]
     Active Substance: HYDROCODONE BITARTRATE
     Indication: HAND FRACTURE
     Dosage: UNK
     Route: 048
     Dates: start: 1999
  2. OXYCODONE HYDROCHLORIDE (SIMILAR TO NDA 22-272) [Suspect]
     Active Substance: OXYCODONE HYDROCHLORIDE
     Indication: HAND FRACTURE
     Dosage: UNK
     Route: 048
     Dates: start: 1999

REACTIONS (5)
  - Malaise [Unknown]
  - Pain [Unknown]
  - Drug dependence [Unknown]
  - Mental disorder [Unknown]
  - Overdose [Unknown]

NARRATIVE: CASE EVENT DATE: 201404
